FAERS Safety Report 22003089 (Version 5)
Quarter: 2023Q4

REPORT INFORMATION
  Report Type: Report from Study
  Country: US (occurrence: US)
  Receive Date: 20230217
  Receipt Date: 20231213
  Transmission Date: 20240109
  Serious: Yes (Hospitalization)
  Sender: FDA-Public Use
  Company Number: US-002147023-NVSC2023US036671

PATIENT
  Age: 86 Year
  Sex: Female

DRUGS (2)
  1. XIIDRA [Suspect]
     Active Substance: LIFITEGRAST
     Indication: Product used for unknown indication
     Dosage: UNK, BID
     Route: 065
     Dates: start: 20190402
  2. XIIDRA [Suspect]
     Active Substance: LIFITEGRAST
     Dosage: 5 %, BID
     Route: 047
     Dates: start: 20200429

REACTIONS (4)
  - Illness [Recovered/Resolved]
  - Eye disorder [Unknown]
  - Product use issue [Unknown]
  - Eye irritation [Unknown]

NARRATIVE: CASE EVENT DATE: 20221001
